FAERS Safety Report 18524693 (Version 4)
Quarter: 2021Q2

REPORT INFORMATION
  Report Type: Spontaneous
  Country: US (occurrence: US)
  Receive Date: 20201119
  Receipt Date: 20210429
  Transmission Date: 20210717
  Serious: Yes (Other)
  Sender: FDA-Public Use
  Company Number: US-TAKEDA-2020TUS051065

PATIENT
  Age: 81 Year
  Sex: Male
  Weight: 72.1 kg

DRUGS (7)
  1. NINLARO [Suspect]
     Active Substance: IXAZOMIB CITRATE
     Indication: WALDENSTROM^S MACROGLOBULINAEMIA
     Dosage: 4 MILLIGRAM, 1/WEEK
     Route: 048
     Dates: start: 20200917
  2. AMLODIPINE [Concomitant]
     Active Substance: AMLODIPINE BESYLATE
     Dosage: UNK
  3. FINASTERIDE. [Concomitant]
     Active Substance: FINASTERIDE
     Dosage: UNK
  4. RITUXAN [Concomitant]
     Active Substance: RITUXIMAB
     Dosage: 700 MILLIGRAM
     Route: 042
     Dates: start: 20200513
  5. NORCO [Concomitant]
     Active Substance: ACETAMINOPHEN\HYDROCODONE BITARTRATE
     Dosage: UNK
  6. AMOXICILLIN. [Concomitant]
     Active Substance: AMOXICILLIN
     Dosage: UNK
  7. ACETAMINOPHEN. [Concomitant]
     Active Substance: ACETAMINOPHEN
     Dosage: UNK

REACTIONS (9)
  - Swelling [Unknown]
  - Dizziness [Unknown]
  - Off label use [Unknown]
  - Dyspnoea [Unknown]
  - Fatigue [Unknown]
  - Hyposmia [Unknown]
  - Hernia repair [Unknown]
  - Waldenstrom^s macroglobulinaemia [Unknown]
  - Hypogeusia [Unknown]

NARRATIVE: CASE EVENT DATE: 20210407
